FAERS Safety Report 9561337 (Version 1)
Quarter: 2013Q3

REPORT INFORMATION
  Report Type: Spontaneous
  Country: US (occurrence: US)
  Receive Date: 20130927
  Receipt Date: 20130927
  Transmission Date: 20140515
  Serious: No
  Sender: FDA-Public Use
  Company Number: US-BIOGENIDEC-2013BI057956

PATIENT
  Age: 62 Year
  Sex: Female

DRUGS (15)
  1. TECFIDERA [Suspect]
     Indication: MULTIPLE SCLEROSIS
     Route: 048
     Dates: start: 20130424, end: 20130430
  2. TECFIDERA [Suspect]
     Indication: MULTIPLE SCLEROSIS
     Route: 048
     Dates: start: 20130501
  3. TECFIDERA [Suspect]
     Indication: MULTIPLE SCLEROSIS
     Route: 048
     Dates: start: 20130501
  4. COREG [Concomitant]
  5. ZOLOFT [Concomitant]
  6. FELDENE [Concomitant]
  7. ASPIRIN [Concomitant]
  8. ZANTAC [Concomitant]
  9. LAMICTAL [Concomitant]
  10. NEXIUM [Concomitant]
  11. VIT D [Concomitant]
  12. TOPAMAX [Concomitant]
  13. BONIVA [Concomitant]
  14. MVI [Concomitant]
  15. E-BASE [Concomitant]

REACTIONS (1)
  - Alopecia [Unknown]
